FAERS Safety Report 12845460 (Version 1)
Quarter: 2016Q4

REPORT INFORMATION
  Report Type: Spontaneous
  Country: US (occurrence: US)
  Receive Date: 20161013
  Receipt Date: 20161013
  Transmission Date: 20170207
  Serious: No
  Sender: FDA-Public Use
  Company Number: US-JAZZ-2016-US-013660

PATIENT
  Sex: Female

DRUGS (26)
  1. XYREM [Suspect]
     Active Substance: SODIUM OXYBATE
     Indication: CATAPLEXY
     Dosage: 3 G, BID
     Route: 048
     Dates: start: 201006, end: 2011
  2. METFORMIN HCL [Concomitant]
     Active Substance: METFORMIN HYDROCHLORIDE
  3. NYSTATIN. [Concomitant]
     Active Substance: NYSTATIN
  4. AVALIDE [Concomitant]
     Active Substance: HYDROCHLOROTHIAZIDE\IRBESARTAN
  5. GLUCOSE [Concomitant]
     Active Substance: DEXTROSE
  6. VICTOZA [Concomitant]
     Active Substance: LIRAGLUTIDE
  7. XYREM [Suspect]
     Active Substance: SODIUM OXYBATE
     Indication: NARCOLEPSY
     Dosage: 2.25 G, BID
     Route: 048
     Dates: start: 201004, end: 201006
  8. SIMVASTATIN. [Concomitant]
     Active Substance: SIMVASTATIN
  9. SYNTHROID [Concomitant]
     Active Substance: LEVOTHYROXINE SODIUM
  10. VITAMIN B12 [Concomitant]
     Active Substance: CYANOCOBALAMIN
  11. CALCIUM +D [Concomitant]
     Active Substance: CALCIUM\VITAMIN D
  12. NEURONTIN [Concomitant]
     Active Substance: GABAPENTIN
  13. SERTRALINE HCL [Concomitant]
     Active Substance: SERTRALINE HYDROCHLORIDE
  14. TUMS [Concomitant]
     Active Substance: CALCIUM CARBONATE
  15. VENTOLIN HFA [Concomitant]
     Active Substance: ALBUTEROL SULFATE
  16. XYREM [Suspect]
     Active Substance: SODIUM OXYBATE
     Dosage: 2.25 G, BID
     Route: 048
     Dates: start: 201104
  17. ABILIFY [Concomitant]
     Active Substance: ARIPIPRAZOLE
  18. INVOKAMET [Concomitant]
     Active Substance: CANAGLIFLOZIN\METFORMIN HYDROCHLORIDE
  19. LEVEMIR [Concomitant]
     Active Substance: INSULIN DETEMIR
  20. LOSARTAN POTASSIUM. [Concomitant]
     Active Substance: LOSARTAN POTASSIUM
  21. TYLENOL [Concomitant]
     Active Substance: ACETAMINOPHEN
  22. LORAZEPAM. [Concomitant]
     Active Substance: LORAZEPAM
  23. CENTRUM [Concomitant]
     Active Substance: VITAMINS
  24. NYAMYC [Concomitant]
     Active Substance: NYSTATIN
  25. SINGULAIR [Concomitant]
     Active Substance: MONTELUKAST SODIUM
  26. VITAMIN B12 [Concomitant]
     Active Substance: CYANOCOBALAMIN

REACTIONS (1)
  - Fatigue [Unknown]
